FAERS Safety Report 23069803 (Version 1)
Quarter: 2023Q4

REPORT INFORMATION
  Report Type: Spontaneous
  Country: TR (occurrence: TR)
  Receive Date: 20231016
  Receipt Date: 20231016
  Transmission Date: 20240110
  Serious: Yes (Other)
  Sender: FDA-Public Use
  Company Number: TR-SUN PHARMACEUTICAL INDUSTRIES LTD-2023R1-412240

PATIENT
  Age: 43 Year
  Sex: Male

DRUGS (22)
  1. LITHIUM [Suspect]
     Active Substance: LITHIUM
     Indication: Anhedonia
     Dosage: 1200 MILLIGRAM, DAILY
     Route: 065
  2. LITHIUM [Suspect]
     Active Substance: LITHIUM
     Indication: Asthenia
  3. LITHIUM [Suspect]
     Active Substance: LITHIUM
     Indication: Decreased interest
  4. LITHIUM [Suspect]
     Active Substance: LITHIUM
     Indication: Feeling of despair
  5. LITHIUM [Suspect]
     Active Substance: LITHIUM
     Indication: Sleep disorder
  6. LITHIUM [Suspect]
     Active Substance: LITHIUM
     Indication: Decreased appetite
  7. LITHIUM [Suspect]
     Active Substance: LITHIUM
     Indication: Libido decreased
  8. LITHIUM [Suspect]
     Active Substance: LITHIUM
     Indication: Bipolar disorder
  9. LAMOTRIGINE [Concomitant]
     Active Substance: LAMOTRIGINE
     Indication: Anhedonia
     Dosage: 100 MILLIGRAM, DAILY
     Route: 065
  10. LAMOTRIGINE [Concomitant]
     Active Substance: LAMOTRIGINE
     Indication: Asthenia
  11. LAMOTRIGINE [Concomitant]
     Active Substance: LAMOTRIGINE
     Indication: Decreased interest
  12. LAMOTRIGINE [Concomitant]
     Active Substance: LAMOTRIGINE
     Indication: Feeling of despair
  13. LAMOTRIGINE [Concomitant]
     Active Substance: LAMOTRIGINE
     Indication: Sleep disorder
  14. LAMOTRIGINE [Concomitant]
     Active Substance: LAMOTRIGINE
     Indication: Decreased appetite
  15. LAMOTRIGINE [Concomitant]
     Active Substance: LAMOTRIGINE
     Indication: Libido decreased
  16. OLANZAPINE [Concomitant]
     Active Substance: OLANZAPINE
     Indication: Anhedonia
     Dosage: 20 MILLIGRAM, DAILY
     Route: 065
  17. OLANZAPINE [Concomitant]
     Active Substance: OLANZAPINE
     Indication: Asthenia
  18. OLANZAPINE [Concomitant]
     Active Substance: OLANZAPINE
     Indication: Decreased interest
  19. OLANZAPINE [Concomitant]
     Active Substance: OLANZAPINE
     Indication: Feeling of despair
  20. OLANZAPINE [Concomitant]
     Active Substance: OLANZAPINE
     Indication: Sleep disorder
  21. OLANZAPINE [Concomitant]
     Active Substance: OLANZAPINE
     Indication: Decreased appetite
  22. OLANZAPINE [Concomitant]
     Active Substance: OLANZAPINE
     Indication: Libido decreased

REACTIONS (1)
  - Acne [Recovering/Resolving]
